FAERS Safety Report 13094561 (Version 1)
Quarter: 2017Q1

REPORT INFORMATION
  Report Type: Spontaneous
  Country: US (occurrence: US)
  Receive Date: 20170106
  Receipt Date: 20170106
  Transmission Date: 20170428
  Serious: No
  Sender: FDA-Public Use
  Company Number: US-AMNEAL PHARMACEUTICALS-2016AMN00663

PATIENT
  Age: 57 Year
  Sex: Female
  Weight: 70.3 kg

DRUGS (2)
  1. ANOTHER PAIN MEDICATION (ANOTHER MANUFACTURER) [Suspect]
     Active Substance: UNSPECIFIED INGREDIENT
     Indication: PAIN MANAGEMENT
     Dosage: TWICE A DAY
  2. OXYCODONE AND ACETAMINOPHEN [Suspect]
     Active Substance: ACETAMINOPHEN\OXYCODONE HYDROCHLORIDE
     Indication: PAIN
     Dosage: UNK MG, 1X/DAY
     Route: 048
     Dates: start: 20160927, end: 20161005

REACTIONS (11)
  - Decreased appetite [Recovered/Resolved]
  - Irritability [Recovered/Resolved]
  - Palpitations [Recovered/Resolved]
  - Anger [None]
  - Product substitution issue [None]
  - Trismus [Recovered/Resolved]
  - Constipation [Recovering/Resolving]
  - Malaise [Recovered/Resolved]
  - Product substitution issue [Unknown]
  - Muscle tightness [Recovered/Resolved]
  - Product formulation issue [Unknown]

NARRATIVE: CASE EVENT DATE: 20160927
